FAERS Safety Report 5904959-2 (Version None)
Quarter: 2008Q3

REPORT INFORMATION
  Report Type: 
  Country: None (occurrence: None)
  Receive Date: 20080909
  Receipt Date: 20080423
  Transmission Date: 20090109
  Serious: Yes (Hospitalization)
  Sender: FDA-Public Use
  Company Number: 163-20785-08041685

PATIENT
  Age: 78 Year
  Sex: Male
  Weight: 103 kg

DRUGS (15)
  1. THALOMID [Suspect]
     Indication: MULTIPLE MYELOMA
     Dosage: 200MG - 50MG, DAILY, ORAL
     Route: 048
     Dates: start: 20040602, end: 20080417
  2. DEXAMETHASONE TAB [Suspect]
     Indication: MULTIPLE MYELOMA
     Dosage: 40MG - 12MG
     Dates: start: 20040602, end: 20080406
  3. BACTRIM DS [Concomitant]
  4. MYCELEX TROC (CLOTRIMAZOLE) [Concomitant]
  5. FOLIC ACID [Concomitant]
  6. MULTIVITAMINS (MULTIVITAMINS) (TABLETS) [Concomitant]
  7. POTASSIUM CHLORIDE [Concomitant]
  8. ARICEPT [Concomitant]
  9. LASIX [Concomitant]
  10. NORVASC [Concomitant]
  11. SINEMET [Concomitant]
  12. ASPIRIN [Concomitant]
  13. DARVOCET-N 100 [Concomitant]
  14. ACYCLOVIR (ACICLOVIR) (TABLETS) [Concomitant]
  15. ALDACTONE [Concomitant]

REACTIONS (1)
  - BRONCHITIS [None]
